FAERS Safety Report 16927627 (Version 1)
Quarter: 2019Q4

REPORT INFORMATION
  Report Type: Report from Study
  Country: US (occurrence: US)
  Receive Date: 20191016
  Receipt Date: 20191016
  Transmission Date: 20200122
  Serious: Yes (Other)
  Sender: FDA-Public Use
  Company Number: NVSC2019US003078

PATIENT
  Sex: Male

DRUGS (1)
  1. ENTRESTO [Suspect]
     Active Substance: SACUBITRIL\VALSARTAN
     Indication: CARDIAC DISORDER
     Route: 048

REACTIONS (6)
  - Product use in unapproved indication [Unknown]
  - Diabetes mellitus [Unknown]
  - Back injury [Unknown]
  - Paraplegia [Unknown]
  - Fatigue [Unknown]
  - Liver disorder [Unknown]
